FAERS Safety Report 9012071 (Version 1)
Quarter: 2013Q1

REPORT INFORMATION
  Report Type: Spontaneous
  Country: US (occurrence: US)
  Receive Date: 20130114
  Receipt Date: 20130114
  Transmission Date: 20140127
  Serious: Yes (Other)
  Sender: FDA-Public Use
  Company Number: US-BAYER-2013-003318

PATIENT
  Age: 38 Year
  Sex: Female
  Weight: 91.61 kg

DRUGS (6)
  1. YAZ [Suspect]
     Dosage: UNK
  2. GIANVI [Suspect]
     Dosage: UNK
  3. FLUCONAZOLE [Concomitant]
     Dosage: 150 MG, UNK
  4. ANAPROX [Concomitant]
     Dosage: 550 MG, BID AS NEEDED
     Dates: start: 20110714
  5. NAPROXEN [Concomitant]
     Dosage: 550 MG, BID AS NEEDED
     Dates: start: 20110714
  6. VITAMINS [Concomitant]
     Dosage: UNK

REACTIONS (1)
  - Cholelithiasis [None]
